FAERS Safety Report 25587757 (Version 1)
Quarter: 2025Q3

REPORT INFORMATION
  Report Type: Spontaneous
  Country: US (occurrence: US)
  Receive Date: 20250721
  Receipt Date: 20250721
  Transmission Date: 20251020
  Serious: No
  Sender: SANOFI AVENTIS
  Company Number: US-SA-2025SA204289

PATIENT
  Age: 66 Year
  Sex: Female

DRUGS (4)
  1. MULTAQ [Suspect]
     Active Substance: DRONEDARONE
     Indication: Mitral valve incompetence
     Dosage: 400 MG, BID
     Route: 048
  2. MULTAQ [Suspect]
     Active Substance: DRONEDARONE
     Indication: Tricuspid valve incompetence
  3. MULTAQ [Suspect]
     Active Substance: DRONEDARONE
     Indication: Heart valve replacement
  4. MULTAQ [Suspect]
     Active Substance: DRONEDARONE
     Indication: Ill-defined disorder

REACTIONS (1)
  - Off label use [Unknown]
